FAERS Safety Report 8761245 (Version 1)
Quarter: 2012Q4

REPORT INFORMATION
  Report Type: 
  Country: MY (occurrence: MY)
  Receive Date: 20120830
  Receipt Date: 20120830
  Transmission Date: 20130627
  Serious: Yes (Other)
  Sender: FDA-Public Use
  Company Number: MY-GLAXOSMITHKLINE-B0822756A

PATIENT
  Age: 64 Year
  Sex: Male

DRUGS (3)
  1. ARIXTRA [Suspect]
     Indication: ACUTE CORONARY SYNDROME
     Route: 058
  2. CLOPIDOGREL [Suspect]
     Indication: ACUTE CORONARY SYNDROME
     Route: 048
  3. ASPIRIN [Suspect]
     Indication: ACUTE CORONARY SYNDROME
     Route: 048

REACTIONS (1)
  - Haematemesis [Unknown]
